FAERS Safety Report 19405099 (Version 1)
Quarter: 2021Q2

REPORT INFORMATION
  Report Type: Spontaneous
  Country: US (occurrence: US)
  Receive Date: 20210611
  Receipt Date: 20210611
  Transmission Date: 20210717
  Serious: Yes (Disabling)
  Sender: FDA-Public Use
  Company Number: None

PATIENT
  Age: 51 Year
  Sex: Female
  Weight: 63 kg

DRUGS (5)
  1. VITAMIN D [Concomitant]
     Active Substance: VITAMIN D NOS
  2. MULTIVITAMIN [Concomitant]
     Active Substance: VITAMINS
  3. TUMERIC [Concomitant]
     Active Substance: HERBALS\TURMERIC
  4. MOMETASONE FUROATE CREAM USP .1% [Suspect]
     Active Substance: MOMETASONE FUROATE
     Indication: RADIOTHERAPY
     Dosage: ?          QUANTITY:1 AS NEEDED;?
     Route: 061
     Dates: start: 20210415, end: 20210527
  5. PANTOPRAZOLE [Concomitant]
     Active Substance: PANTOPRAZOLE

REACTIONS (7)
  - Disturbance in attention [None]
  - Crying [None]
  - Suicidal ideation [None]
  - Confusional state [None]
  - Depression [None]
  - Anxiety [None]
  - Nervous system disorder [None]

NARRATIVE: CASE EVENT DATE: 20210519
